FAERS Safety Report 8799439 (Version 1)
Quarter: 2012Q4

REPORT INFORMATION
  Report Type: Spontaneous
  Country: US (occurrence: None)
  Receive Date: 20120906
  Receipt Date: 20120906
  Transmission Date: 20130627
  Serious: Yes (Life-Threatening, Hospitalization)
  Sender: FDA-Public Use
  Company Number: 138560

PATIENT
  Age: 28 Year
  Sex: Male
  Weight: 76 kg

DRUGS (1)
  1. ADRIAMYCIN [Suspect]
     Indication: RHABDOMYOSARCOMA
     Route: 042
     Dates: start: 20120613

REACTIONS (4)
  - Hypertension [None]
  - Renal impairment [None]
  - Stevens-Johnson syndrome [None]
  - Febrile neutropenia [None]
